FAERS Safety Report 10635360 (Version 1)
Quarter: 2014Q4

REPORT INFORMATION
  Report Type: Spontaneous
  Country: DE (occurrence: DE)
  Receive Date: 20141205
  Receipt Date: 20141205
  Transmission Date: 20150529
  Serious: Yes (Hospitalization, Congenital Anomaly, Other)
  Sender: FDA-Public Use
  Company Number: DE-ASTRAZENECA-2014SE91642

PATIENT
  Age: 1 Day
  Sex: Male
  Weight: 3.4 kg

DRUGS (13)
  1. FOLIC ACID. [Concomitant]
     Active Substance: FOLIC ACID
     Indication: PROPHYLAXIS OF NEURAL TUBE DEFECT
     Route: 064
  2. PARTUSISTEN [Concomitant]
     Active Substance: FENOTEROL
     Indication: PREMATURE LABOUR
     Route: 064
     Dates: start: 20130111, end: 20130111
  3. SERTRALINE [Suspect]
     Active Substance: SERTRALINE HYDROCHLORIDE
     Indication: BIPOLAR DISORDER
     Route: 064
     Dates: start: 20120604, end: 20130309
  4. L-THYROXIN [Concomitant]
     Active Substance: LEVOTHYROXINE SODIUM
     Indication: HYPOTHYROIDISM
     Dosage: 100 [MCG/D (TO 75) ]/ HYPOTHYROIDISM AS ADVERSE EFFECT OF LITHIUM THERAPY
     Route: 064
     Dates: start: 20120604, end: 20130309
  5. CELESTAN [Concomitant]
     Active Substance: BETAMETHASONE
     Indication: MATERNAL THERAPY TO ENHANCE FOETAL LUNG MATURITY
     Route: 064
     Dates: start: 20130116, end: 20130117
  6. CYTOTEC [Concomitant]
     Active Substance: MISOPROSTOL
     Indication: LABOUR INDUCTION
     Route: 064
     Dates: start: 20130308, end: 20130308
  7. CEFUROXIM [Concomitant]
     Active Substance: CEFUROXIME
     Indication: INFECTION PROPHYLAXIS
     Route: 064
     Dates: start: 20130308, end: 20130308
  8. SEROQUEL [Suspect]
     Active Substance: QUETIAPINE FUMARATE
     Indication: BIPOLAR DISORDER
     Route: 064
     Dates: start: 20120604, end: 20130309
  9. PROTAPHANE [Concomitant]
     Active Substance: INSULIN HUMAN
     Indication: GESTATIONAL DIABETES
     Route: 064
  10. METFORMIN [Concomitant]
     Active Substance: METFORMIN HYDROCHLORIDE
     Indication: POLYCYSTIC OVARIES
     Route: 064
     Dates: start: 20120604, end: 20120724
  11. QUILONUM [Suspect]
     Active Substance: LITHIUM CARBONATE
     Indication: BIPOLAR DISORDER
     Dosage: 1350 [MG/D (TO 1150)]
     Route: 064
     Dates: start: 20120604, end: 20130309
  12. LAMOTRIGIN [Suspect]
     Active Substance: LAMOTRIGINE
     Indication: BIPOLAR DISORDER
     Route: 064
     Dates: start: 20120604, end: 20130309
  13. AMOXYPEN [Concomitant]
     Active Substance: AMOXICILLIN
     Indication: C-REACTIVE PROTEIN INCREASED
     Route: 064

REACTIONS (5)
  - Pyloric stenosis [Recovered/Resolved]
  - Vesicoureteric reflux [Not Recovered/Not Resolved]
  - Kidney duplex [Not Recovered/Not Resolved]
  - Haemangioma congenital [Unknown]
  - Agitation neonatal [Recovered/Resolved]

NARRATIVE: CASE EVENT DATE: 20130309
